FAERS Safety Report 10577564 (Version 1)
Quarter: 2014Q4

REPORT INFORMATION
  Report Type: Spontaneous
  Country: US (occurrence: US)
  Receive Date: 20141111
  Receipt Date: 20141111
  Transmission Date: 20150529
  Serious: No
  Sender: FDA-Public Use
  Company Number: US-GLAXOSMITHKLINE-US2014GSK008152

PATIENT
  Sex: Female
  Weight: 48 kg

DRUGS (1)
  1. EQUATE NICOTINE [Suspect]
     Active Substance: NICOTINE
     Dosage: 7 MG, UNK
     Route: 062
     Dates: start: 20140921, end: 20141013

REACTIONS (1)
  - Drug ineffective [Unknown]
